FAERS Safety Report 10221767 (Version 1)
Quarter: 2014Q2

REPORT INFORMATION
  Report Type: Spontaneous
  Country: JP (occurrence: JP)
  Receive Date: 20140606
  Receipt Date: 20140606
  Transmission Date: 20141212
  Serious: No
  Sender: FDA-Public Use
  Company Number: JP-BIOMARINAP-JP-2013-101006

PATIENT
  Age: 21 Year
  Sex: Female

DRUGS (9)
  1. NAGLAZYME [Suspect]
     Indication: MUCOPOLYSACCHARIDOSIS VI
     Dosage: 1 MG/KG, UNK
     Route: 041
     Dates: start: 20070517
  2. NAGLAZYME [Suspect]
     Dosage: 25 MG, UNK
     Route: 041
     Dates: start: 20080410, end: 20100623
  3. NAGLAZYME [Suspect]
     Dosage: 30 MG, UNK
     Route: 041
     Dates: start: 20100607
  4. ACETAMINOPHEN [Concomitant]
     Indication: PREMEDICATION
     Dosage: 200 MG, PRN
     Route: 048
     Dates: start: 20080207
  5. SOLU-CORTEF [Concomitant]
     Indication: PREMEDICATION
     Dosage: 100 MG, PRN
     Route: 042
     Dates: start: 20080918
  6. POLARAMINE [Concomitant]
     Indication: PREMEDICATION
     Dosage: 5 MG, PRN
     Route: 042
     Dates: start: 20081016
  7. TRAVATANZ [Concomitant]
     Indication: GLAUCOMA
     Dosage: 1 GTT, QD
     Route: 047
     Dates: start: 20100910
  8. RYSMON TG [Concomitant]
     Indication: GLAUCOMA
     Dosage: 1 GTT, QD
     Dates: start: 20100910
  9. SELTOUCH [Concomitant]
     Indication: MYALGIA
     Dosage: 1 DF, PRN
     Route: 062
     Dates: start: 20120425, end: 20120502

REACTIONS (1)
  - Diarrhoea [Recovering/Resolving]
